FAERS Safety Report 9248625 (Version 2)
Quarter: 2013Q2

REPORT INFORMATION
  Report Type: Spontaneous
  Country: DK (occurrence: DK)
  Receive Date: 20130423
  Receipt Date: 20130626
  Transmission Date: 20140414
  Serious: Yes (Other)
  Sender: FDA-Public Use
  Company Number: DK-ROCHE-1212237

PATIENT
  Age: 55 Year
  Sex: Female

DRUGS (36)
  1. HERCEPTIN [Suspect]
     Indication: PRODUCT USED FOR UNKNOWN INDICATION
     Route: 042
     Dates: start: 20041122
  2. HERCEPTIN [Suspect]
     Route: 042
     Dates: start: 20051209
  3. HERCEPTIN [Suspect]
     Dosage: MONOTHERAPY
     Route: 065
     Dates: start: 20060925
  4. HERCEPTIN [Suspect]
     Dosage: MONOTHERAPY
     Route: 065
     Dates: start: 20061016
  5. HERCEPTIN [Suspect]
     Dosage: MONOTHERAPY
     Route: 065
     Dates: start: 20061106
  6. HERCEPTIN [Suspect]
     Dosage: 1500 MG MORNING AND 1800 MG EVENING
     Route: 065
  7. HERCEPTIN [Suspect]
     Dosage: 2 GM PER KG
     Route: 042
  8. HERCEPTIN [Suspect]
     Route: 042
  9. HERCEPTIN [Suspect]
     Route: 065
     Dates: start: 20080904
  10. HERCEPTIN [Suspect]
     Route: 065
     Dates: start: 20081030
  11. HERCEPTIN [Suspect]
     Route: 065
     Dates: start: 20120507
  12. HERCEPTIN [Suspect]
     Route: 042
     Dates: start: 20060127
  13. XELODA [Suspect]
     Indication: PRODUCT USED FOR UNKNOWN INDICATION
     Dosage: SERIES 1 AND 2: 2 GM FOR TWICE FROM DAY 1 TO 14 PER SERIES, SERIES 3 1.5 GM FOR TWICE FROM DAY 1 TO
     Route: 065
  14. XELODA [Suspect]
     Dosage: 1500 MG MORNING AND 1800 MG EVENING
     Route: 065
  15. XELODA [Suspect]
     Dosage: 1500 MG EVEINING AND 1300 MG MORNING
     Route: 065
  16. AVASTIN [Suspect]
     Indication: PRODUCT USED FOR UNKNOWN INDICATION
     Route: 065
  17. TAXOTERE [Suspect]
     Indication: PRODUCT USED FOR UNKNOWN INDICATION
     Route: 042
     Dates: start: 20041123
  18. TAXOL [Suspect]
     Indication: PRODUCT USED FOR UNKNOWN INDICATION
     Route: 065
  19. TAXOL [Suspect]
     Route: 042
  20. TAXOL [Suspect]
     Route: 065
     Dates: start: 20081030
  21. TAXOL [Suspect]
     Route: 065
  22. TAXOL [Suspect]
     Route: 065
  23. CARBOPLATIN [Suspect]
     Indication: PRODUCT USED FOR UNKNOWN INDICATION
     Route: 065
  24. TYVERB [Suspect]
     Indication: PRODUCT USED FOR UNKNOWN INDICATION
     Dosage: MONOTHERAPY
     Route: 065
     Dates: start: 20090925
  25. TYVERB [Suspect]
     Route: 065
     Dates: start: 20120507
  26. VINORELBINE [Suspect]
     Indication: PRODUCT USED FOR UNKNOWN INDICATION
     Route: 042
     Dates: start: 20051209
  27. VINORELBINE [Suspect]
     Route: 042
     Dates: start: 20060403
  28. TAVEGYL [Concomitant]
  29. ZANTAC [Concomitant]
  30. SOLU-MEDROL [Concomitant]
  31. TEMESTA [Concomitant]
  32. PREDNISOLON [Concomitant]
  33. KYTRIL [Concomitant]
     Route: 065
  34. EMPERAL [Concomitant]
  35. ZOFRAN [Concomitant]
  36. CORODIL [Concomitant]

REACTIONS (37)
  - Disease progression [Not Recovered/Not Resolved]
  - Ejection fraction decreased [Unknown]
  - Paraesthesia [Unknown]
  - Dysaesthesia [Unknown]
  - Nausea [Recovering/Resolving]
  - Abdominal discomfort [Recovering/Resolving]
  - Headache [Recovering/Resolving]
  - Influenza like illness [Recovering/Resolving]
  - Fatigue [Unknown]
  - Dysgeusia [Recovering/Resolving]
  - Dyspnoea [Unknown]
  - Heart rate irregular [Recovering/Resolving]
  - Dry mouth [Unknown]
  - Constipation [Unknown]
  - Nail disorder [Recovered/Resolved]
  - Fluid retention [Not Recovered/Not Resolved]
  - Lymphoedema [Recovered/Resolved]
  - Calcium ionised increased [Unknown]
  - Diarrhoea [Unknown]
  - Sensory disturbance [Unknown]
  - Neurological symptom [Unknown]
  - Skin ulcer [Unknown]
  - Chest pain [Unknown]
  - Sleep disorder [Unknown]
  - Myalgia [Unknown]
  - Malaise [Recovered/Resolved]
  - Neutropenia [Unknown]
  - Rash pustular [Unknown]
  - Skin fissures [Recovered/Resolved]
  - Cough [Unknown]
  - Vulvovaginal dryness [Recovering/Resolving]
  - Nasal ulcer [Recovered/Resolved]
  - Erythema [Unknown]
  - Local swelling [Unknown]
  - Lip swelling [Unknown]
  - Cheilitis [Unknown]
  - Palmar-plantar erythrodysaesthesia syndrome [Recovering/Resolving]
